FAERS Safety Report 10922241 (Version 2)
Quarter: 2015Q2

REPORT INFORMATION
  Report Type: Spontaneous
  Country: US (occurrence: US)
  Receive Date: 20150317
  Receipt Date: 20150413
  Transmission Date: 20150821
  Serious: Yes (Other)
  Sender: FDA-Public Use
  Company Number: US-ELI_LILLY_AND_COMPANY-US201503004314

PATIENT
  Sex: Male

DRUGS (4)
  1. INSULIN HUMAN [Suspect]
     Active Substance: INSULIN HUMAN
     Dosage: 10 U, BID
     Route: 065
     Dates: start: 2014
  2. INSULIN HUMAN [Suspect]
     Active Substance: INSULIN HUMAN
     Dosage: UNK
     Route: 065
  3. METFORMIN [Concomitant]
     Active Substance: METFORMIN HYDROCHLORIDE
     Dosage: 1000 MG, BID
  4. INSULIN HUMAN [Suspect]
     Active Substance: INSULIN HUMAN
     Indication: TYPE 2 DIABETES MELLITUS
     Dosage: 15 U, BID
     Route: 065
     Dates: start: 2014

REACTIONS (4)
  - Hypoglycaemic unconsciousness [Recovered/Resolved]
  - Nasopharyngitis [Not Recovered/Not Resolved]
  - Blood glucose increased [Unknown]
  - Drug effect decreased [Unknown]
